FAERS Safety Report 11137746 (Version 1)
Quarter: 2015Q2

REPORT INFORMATION
  Report Type: Spontaneous
  Country: US (occurrence: US)
  Receive Date: 20150526
  Receipt Date: 20150526
  Transmission Date: 20150821
  Serious: Yes (Hospitalization)
  Sender: FDA-Public Use
  Company Number: US-MALLINCKRODT-T201500867

PATIENT
  Sex: Female
  Weight: 54 kg

DRUGS (1)
  1. H.P. ACTHAR [Suspect]
     Active Substance: CORTICOTROPIN
     Indication: IGA NEPHROPATHY
     Dosage: 80 U, BIWEEKLY
     Route: 065
     Dates: start: 20141204, end: 201501

REACTIONS (1)
  - Swelling [Recovered/Resolved]
